FAERS Safety Report 8816759 (Version 3)
Quarter: 2013Q1

REPORT INFORMATION
  Report Type: Spontaneous
  Country: US (occurrence: None)
  Receive Date: 20121001
  Receipt Date: 20130226
  Transmission Date: 20140127
  Serious: Yes (Hospitalization)
  Sender: FDA-Public Use
  Company Number: 2012-487

PATIENT
  Age: 75 Year
  Sex: Female

DRUGS (7)
  1. PRIALT (ZICONOTIDE) INTRATHECAL INFUSION [Suspect]
     Dosage: ONCE/HOUR
     Route: 037
     Dates: end: 201205
  2. PRIALT (ZICONOTIDE) INTRATHECAL INFUSION [Suspect]
     Indication: MULTIPLE SCLEROSIS
     Dosage: ONCE/HOUR
     Route: 037
     Dates: end: 201205
  3. PRIALT (ZICONOTIDE) INTRATHECAL INFUSION [Suspect]
     Dosage: ONCE/HOUR
     Route: 037
     Dates: end: 201205
  4. PRIALT (ZICONOTIDE) INTRATHECAL INFUSION [Suspect]
     Dosage: ONCE/HOUR
     Route: 037
     Dates: end: 201205
  5. BACLOFEN [Suspect]
     Dosage: ONCE/HOUR
     Route: 037
  6. CLONIDINE HCL (CLONIDINE HYDROCHLORIDE) INJECTION [Suspect]
     Dosage: ONCE/HOUR
     Route: 037
  7. DILAUDID (HYDROMORPHONE HYDROCHLORIDE) INJECTION [Suspect]
     Dosage: ONCE/HOUR
     Route: 037

REACTIONS (6)
  - Overdose [None]
  - Miosis [None]
  - Sedation [None]
  - Somnolence [None]
  - Psychotic disorder [None]
  - Drug ineffective [None]
